FAERS Safety Report 9169776 (Version 3)
Quarter: 2013Q2

REPORT INFORMATION
  Report Type: Spontaneous
  Country: US (occurrence: US)
  Receive Date: 20130318
  Receipt Date: 20130603
  Transmission Date: 20140414
  Serious: Yes (Hospitalization, Other)
  Sender: FDA-Public Use
  Company Number: US-ELI_LILLY_AND_COMPANY-US201303001542

PATIENT
  Sex: Female
  Weight: 68.03 kg

DRUGS (5)
  1. CYMBALTA [Suspect]
     Indication: DEPRESSION
     Dosage: 600 MG, BID
  2. CHANTIX [Concomitant]
     Indication: SMOKING CESSATION THERAPY
     Dosage: 1 MG, BID
     Route: 048
     Dates: start: 2008, end: 2008
  3. LITHIUM [Concomitant]
  4. GABAPENTIN [Concomitant]
     Indication: BIPOLAR DISORDER
     Dosage: 800 MG, QID
  5. WELLBUTRIN [Concomitant]
     Indication: BIPOLAR DISORDER
     Dosage: UNK, TID

REACTIONS (6)
  - Pneumonia [Unknown]
  - Depression [Unknown]
  - Suicidal ideation [Unknown]
  - Weight decreased [Unknown]
  - Weight increased [Unknown]
  - Overdose [Unknown]
